FAERS Safety Report 8845149 (Version 1)
Quarter: 2012Q4

REPORT INFORMATION
  Report Type: 
  Country: GB (occurrence: GB)
  Receive Date: 20121017
  Receipt Date: 20121017
  Transmission Date: 20130627
  Serious: Yes (Other)
  Sender: FDA-Public Use
  Company Number: GB-BAYER-2012-107645

PATIENT
  Age: 30 Year
  Sex: Female
  Weight: 49.89 kg

DRUGS (4)
  1. BETAFERON [Suspect]
     Indication: MULTIPLE SCLEROSIS
     Dosage: 1 ml, QOD
     Route: 051
     Dates: start: 20120727
  2. GABAPENTIN [Concomitant]
  3. RIGEVIDON [ETHINYLESTRADIOL,LEVONORGESTREL] [Concomitant]
  4. YASMIN, FILM-COATED TABLETS, 0.03 MG/3 MG [Concomitant]

REACTIONS (5)
  - Insomnia [Not Recovered/Not Resolved]
  - Pain in extremity [Recovered/Resolved]
  - Erythema [Recovered/Resolved]
  - Swelling [Recovered/Resolved]
  - Aphthous stomatitis [Recovering/Resolving]
